FAERS Safety Report 10175731 (Version 2)
Quarter: 2014Q3

REPORT INFORMATION
  Report Type: Report from Study
  Country: IE (occurrence: IE)
  Receive Date: 20140516
  Receipt Date: 20140731
  Transmission Date: 20150326
  Serious: Yes (Death, Hospitalization)
  Sender: FDA-Public Use
  Company Number: IE-BRISTOL-MYERS SQUIBB COMPANY-20722864

PATIENT
  Age: 35 Year
  Sex: Female

DRUGS (1)
  1. YERVOY [Suspect]
     Active Substance: IPILIMUMAB
     Route: 042
     Dates: start: 20140428

REACTIONS (6)
  - Rash [Unknown]
  - Headache [Unknown]
  - Fatigue [Unknown]
  - Death [Fatal]
  - Convulsion [Unknown]
  - Memory impairment [Unknown]

NARRATIVE: CASE EVENT DATE: 20140429
